FAERS Safety Report 7603364-0 (Version None)
Quarter: 2011Q3

REPORT INFORMATION
  Report Type: 
  Country: None (occurrence: None)
  Receive Date: 20110712
  Receipt Date: 20110701
  Transmission Date: 20111222
  Serious: Yes (Other)
  Sender: FDA-Public Use
  Company Number: PHEH2008US08371

PATIENT
  Sex: Male

DRUGS (18)
  1. PLAVIX [Concomitant]
  2. GABAPENTIN [Concomitant]
  3. METOPROLOL SUCCINATE [Concomitant]
  4. OXYCODONE HCL [Concomitant]
  5. NEURONTIN [Concomitant]
  6. OXYCONTIN [Concomitant]
  7. VIDAZA [Concomitant]
  8. LISINOPRIL [Concomitant]
  9. ZOMETA [Suspect]
     Indication: MULTIPLE MYELOMA
     Route: 042
  10. FENTANYL [Concomitant]
     Dosage: 125 UG, UNK
     Route: 042
  11. NEXIUM [Concomitant]
  12. ERYTHROMYCIN [Concomitant]
  13. PERCOCET [Concomitant]
  14. SIMVASTATIN [Concomitant]
  15. REVLIMID [Concomitant]
  16. AREDIA [Suspect]
  17. EMLA [Concomitant]
  18. ASPIRIN [Concomitant]

REACTIONS (67)
  - ACETABULUM FRACTURE [None]
  - OSTEOARTHRITIS [None]
  - NERVOUS SYSTEM DISORDER [None]
  - VOMITING [None]
  - LOOSE TOOTH [None]
  - GASTRITIS [None]
  - METASTASES TO BONE [None]
  - ACUTE MYELOID LEUKAEMIA [None]
  - IMPAIRED HEALING [None]
  - LUNG INFILTRATION [None]
  - PERONEAL NERVE PALSY [None]
  - DYSPEPSIA [None]
  - ARTHRITIS [None]
  - ORAL CANDIDIASIS [None]
  - POLYDIPSIA [None]
  - BENCE JONES PROTEIN URINE PRESENT [None]
  - LIVER FUNCTION TEST ABNORMAL [None]
  - HYDROCELE [None]
  - ERYTHEMA OF EYELID [None]
  - THROMBOCYTOPENIA [None]
  - DYSPHAGIA [None]
  - OSTEOMYELITIS [None]
  - BARRETT'S OESOPHAGUS [None]
  - METAPLASIA [None]
  - NEUTROPENIA [None]
  - PULMONARY OEDEMA [None]
  - PLEURAL EFFUSION [None]
  - INFECTION [None]
  - NAUSEA [None]
  - GASTROOESOPHAGEAL REFLUX DISEASE [None]
  - CONSTIPATION [None]
  - ABDOMINAL DISTENSION [None]
  - ASCITES [None]
  - EYELID OEDEMA [None]
  - SMALL INTESTINAL OBSTRUCTION [None]
  - PAIN [None]
  - ABDOMINAL PAIN [None]
  - ARTERIOSCLEROSIS CORONARY ARTERY [None]
  - CORONARY ARTERY DISEASE [None]
  - GINGIVAL BLEEDING [None]
  - BONE LESION [None]
  - FEMUR FRACTURE [None]
  - NEOPLASM MALIGNANT [None]
  - WEIGHT DECREASED [None]
  - PANCYTOPENIA [None]
  - ATELECTASIS [None]
  - DYSPNOEA [None]
  - RIB FRACTURE [None]
  - HIATUS HERNIA [None]
  - OESOPHAGITIS [None]
  - HAEMORRHOIDS [None]
  - POLYURIA [None]
  - MYELODYSPLASTIC SYNDROME [None]
  - LYMPHOEDEMA [None]
  - MYOCARDIAL INFARCTION [None]
  - PNEUMONIA [None]
  - EXPOSED BONE IN JAW [None]
  - PETECHIAE [None]
  - OSTEONECROSIS OF JAW [None]
  - TYPE 2 DIABETES MELLITUS [None]
  - MUSCLE ATROPHY [None]
  - SENSORY LOSS [None]
  - HYPOAESTHESIA [None]
  - ANAEMIA [None]
  - NEUROPATHY PERIPHERAL [None]
  - RESPIRATORY DISTRESS [None]
  - CARDIOMEGALY [None]
